FAERS Safety Report 17901651 (Version 1)
Quarter: 2020Q2

REPORT INFORMATION
  Report Type: Spontaneous
  Country: AR (occurrence: AR)
  Receive Date: 20200616
  Receipt Date: 20200616
  Transmission Date: 20200714
  Serious: Yes (Other)
  Sender: FDA-Public Use
  Company Number: AR-GLAXOSMITHKLINE-AR2020GSK095608

PATIENT
  Age: 13 Year
  Sex: Male

DRUGS (5)
  1. LOPINAVIR [Concomitant]
     Active Substance: LOPINAVIR
     Indication: HUMAN IMMUNODEFICIENCY VIRUS TRANSMISSION
     Dosage: UNK
  2. EFAVIRENZ. [Concomitant]
     Active Substance: EFAVIRENZ
     Indication: HUMAN IMMUNODEFICIENCY VIRUS TRANSMISSION
     Dosage: UNK
  3. FLUTICASONE. [Suspect]
     Active Substance: FLUTICASONE
     Indication: IDIOPATHIC INTERSTITIAL PNEUMONIA
     Dosage: 500 UG, QD
     Route: 055
  4. RITONAVIR. [Interacting]
     Active Substance: RITONAVIR
     Indication: HUMAN IMMUNODEFICIENCY VIRUS TRANSMISSION
     Dosage: UNK
  5. ZIDOVUDINE. [Concomitant]
     Active Substance: ZIDOVUDINE
     Indication: HUMAN IMMUNODEFICIENCY VIRUS TRANSMISSION
     Dosage: UNK

REACTIONS (10)
  - Cushing^s syndrome [Recovered/Resolved]
  - Drug interaction [Unknown]
  - Cushingoid [Recovered/Resolved]
  - Weight increased [Recovered/Resolved]
  - Blood corticotrophin decreased [Recovered/Resolved]
  - Nose deformity [Recovered/Resolved]
  - Hypertrichosis [Recovered/Resolved]
  - Cortisol decreased [Recovered/Resolved]
  - Adrenal suppression [Recovered/Resolved]
  - Skin striae [Recovered/Resolved]
